FAERS Safety Report 9866216 (Version 1)
Quarter: 2014Q1

REPORT INFORMATION
  Report Type: Spontaneous
  Country: US (occurrence: US)
  Receive Date: 20140203
  Receipt Date: 20140203
  Transmission Date: 20141002
  Serious: No
  Sender: FDA-Public Use
  Company Number: US-ALLERGAN-1318126US

PATIENT
  Age: 83 Year
  Sex: Female

DRUGS (10)
  1. RESTASIS [Suspect]
     Indication: DRY EYE
     Dosage: 2 GTT, BID
     Route: 047
     Dates: start: 20130910
  2. REFRESH OPTIVE ADVANCED [Concomitant]
     Indication: DRY EYE
     Dosage: UNK, PRN
     Route: 047
  3. EYE DROP NOS [Concomitant]
     Indication: PRODUCT USED FOR UNKNOWN INDICATION
  4. VITAMIN D                          /00107901/ [Concomitant]
     Indication: NUTRITIONAL SUPPLEMENTATION
     Dosage: UNK
  5. MULTIVITAMIN                       /00097801/ [Concomitant]
     Indication: NUTRITIONAL SUPPLEMENTATION
     Dosage: UNK
  6. OSCAL                              /00514701/ [Concomitant]
     Indication: NUTRITIONAL SUPPLEMENTATION
     Dosage: 2 N/A, QD
     Route: 048
  7. CRESTOR [Concomitant]
     Indication: BLOOD CHOLESTEROL INCREASED
     Dosage: UNK
     Route: 048
     Dates: start: 1983
  8. ACTOS [Concomitant]
     Indication: TYPE 2 DIABETES MELLITUS
     Dosage: 45 MG, QD
     Route: 048
  9. ANTI-HYPERTENSIVE MEDICATION NOS [Concomitant]
     Indication: HYPERTENSION
     Dosage: UNK
     Route: 048
  10. DICLOFENAC SODIUM [Concomitant]
     Indication: ARTHRITIS
     Dosage: UNK
     Dates: start: 2012

REACTIONS (1)
  - Drug ineffective [Unknown]
